FAERS Safety Report 6080704-8 (Version None)
Quarter: 2009Q1

REPORT INFORMATION
  Report Type: 
  Country: None (occurrence: None)
  Receive Date: 20090217
  Receipt Date: 20090210
  Transmission Date: 20090719
  Serious: No
  Sender: FDA-Public Use
  Company Number: US-JNJFOC-20090203119

PATIENT
  Sex: Male
  Weight: 63.5 kg

DRUGS (2)
  1. DURAGESIC-100 [Suspect]
     Indication: PAIN
     Route: 062
  2. IMDUR [Concomitant]
     Indication: HYPERTENSION
     Route: 048

REACTIONS (1)
  - DRUG DOSE OMISSION [None]
